FAERS Safety Report 7773982-8 (Version None)
Quarter: 2011Q3

REPORT INFORMATION
  Report Type: 
  Country: None (occurrence: None)
  Receive Date: 20110920
  Receipt Date: 20110906
  Transmission Date: 20111222
  Serious: Yes (Other)
  Sender: FDA-Public Use
  Company Number: B0746969A

PATIENT
  Age: 64 Year
  Sex: Male

DRUGS (5)
  1. ACITRETIN [Suspect]
     Indication: DERMATITIS ATOPIC
  2. PHOTOTHERAPY (PHOTOTHERAPY) [Suspect]
     Indication: DERMATITIS ATOPIC
  3. AZATHIOPRINE [Suspect]
     Indication: DERMATITIS ATOPIC
  4. METHOTREXATE [Suspect]
     Indication: DERMATITIS ATOPIC
  5. CYCLOSPORINE [Suspect]
     Indication: DERMATITIS ATOPIC

REACTIONS (4)
  - NO THERAPEUTIC RESPONSE [None]
  - MYCOSIS FUNGOIDES [None]
  - DRUG INTOLERANCE [None]
  - GASTROINTESTINAL DISORDER [None]
